FAERS Safety Report 9648477 (Version 1)
Quarter: 2013Q4

REPORT INFORMATION
  Report Type: Spontaneous
  Country: US (occurrence: None)
  Receive Date: 20131025
  Receipt Date: 20131025
  Transmission Date: 20140711
  Serious: No
  Sender: FDA-Public Use
  Company Number: None

PATIENT
  Age: 54 Year
  Sex: Female
  Weight: 68.04 kg

DRUGS (1)
  1. COMBIVENT RESPIMAT [Suspect]
     Indication: PNEUMONIA
     Dosage: 1 INHALATION; FOUR TIMES DAILY; INHALATION
     Route: 055
     Dates: start: 20131018, end: 20131019

REACTIONS (6)
  - Heart rate increased [None]
  - Blood pressure increased [None]
  - Nervousness [None]
  - Muscle spasms [None]
  - Back pain [None]
  - Muscle atrophy [None]
